FAERS Safety Report 7178861-5 (Version None)
Quarter: 2010Q4

REPORT INFORMATION
  Report Type: 
  Country: None (occurrence: None)
  Receive Date: 20101221
  Receipt Date: 20101218
  Transmission Date: 20110411
  Serious: Yes (Other)
  Sender: FDA-Public Use
  Company Number: DE-BRISTOL-MYERS SQUIBB COMPANY-15450133

PATIENT
  Age: 20 Year
  Sex: Female
  Weight: 65 kg

DRUGS (4)
  1. ABILIFY [Suspect]
     Route: 048
  2. SEROQUEL [Suspect]
     Route: 048
  3. FLUCTINE [Suspect]
     Route: 048
  4. TRUXAL [Suspect]
     Route: 048

REACTIONS (4)
  - GASTROINTESTINAL SOUNDS ABNORMAL [None]
  - SOMNOLENCE [None]
  - SUICIDE ATTEMPT [None]
  - TACHYCARDIA [None]
